FAERS Safety Report 18655628 (Version 3)
Quarter: 2021Q2

REPORT INFORMATION
  Report Type: Spontaneous
  Country: US (occurrence: US)
  Receive Date: 20201223
  Receipt Date: 20210518
  Transmission Date: 20210717
  Serious: No
  Sender: FDA-Public Use
  Company Number: US-PFIZER INC-2020506802

PATIENT
  Age: 66 Year
  Sex: Female

DRUGS (1)
  1. XELJANZ XR [Suspect]
     Active Substance: TOFACITINIB CITRATE
     Dosage: 11 MG

REACTIONS (10)
  - Gait disturbance [Unknown]
  - Insomnia [Unknown]
  - Initial insomnia [Unknown]
  - Psychiatric symptom [Unknown]
  - Arthralgia [Unknown]
  - Abdominal discomfort [Unknown]
  - Mobility decreased [Unknown]
  - Grip strength decreased [Unknown]
  - Fatigue [Unknown]
  - Middle insomnia [Unknown]
